FAERS Safety Report 12421885 (Version 2)
Quarter: 2016Q2

REPORT INFORMATION
  Report Type: Spontaneous
  Country: US (occurrence: US)
  Receive Date: 20160531
  Receipt Date: 20160616
  Transmission Date: 20160815
  Serious: Yes (Hospitalization)
  Sender: FDA-Public Use
  Company Number: US-MISSION PHARMACAL COMPANY-1052976

PATIENT
  Age: 17 Year
  Sex: Male

DRUGS (1)
  1. THIOLA [Suspect]
     Active Substance: TIOPRONIN
     Indication: CYSTINURIA
     Route: 065
     Dates: start: 20151011

REACTIONS (5)
  - Renal impairment [Unknown]
  - Oedema [Unknown]
  - Vomiting [Unknown]
  - Blood albumin decreased [Unknown]
  - Blood creatinine increased [Unknown]
